FAERS Safety Report 4614828-6 (Version None)
Quarter: 2005Q1

REPORT INFORMATION
  Report Type: 
  Country: None (occurrence: None)
  Receive Date: 20050322
  Receipt Date: 20041222
  Transmission Date: 20050727
  Serious: Yes (Hospitalization)
  Sender: FDA-Public Use
  Company Number: PHBS2004JP17337

PATIENT
  Age: 26 Year
  Sex: Female
  Weight: 54 kg

DRUGS (9)
  1. BUFFERIN [Concomitant]
     Dosage: 81 MG/D
     Route: 048
     Dates: start: 20040508
  2. ONEALFA [Concomitant]
     Dosage: 0.5 UG/D
     Route: 048
     Dates: start: 20040402
  3. LASIX [Concomitant]
     Dosage: 40 MG/D
     Route: 048
     Dates: start: 20040107
  4. ZANTAC [Concomitant]
     Dosage: 150 MG/D
     Route: 048
     Dates: start: 20040109
  5. SELBEX [Concomitant]
     Dosage: 150 MG/D
     Route: 048
     Dates: start: 20031105
  6. PREDNISOLONE [Concomitant]
     Indication: SYSTEMIC LUPUS ERYTHEMATOSUS
     Dosage: 25-60 MG/D
     Route: 048
     Dates: start: 20031101
  7. NEORAL [Suspect]
     Indication: LUPUS NEPHRITIS
     Dosage: 100 MG/D
     Route: 048
     Dates: start: 20040305, end: 20040317
  8. NEORAL [Suspect]
     Dosage: 150 MG/D
     Route: 048
     Dates: start: 20040318, end: 20040506
  9. VALSARTAN [Concomitant]

REACTIONS (8)
  - BLEEDING TIME PROLONGED [None]
  - BRAIN NATRIURETIC PEPTIDE INCREASED [None]
  - CARDIAC FAILURE CONGESTIVE [None]
  - DILATATION VENTRICULAR [None]
  - DRUG LEVEL INCREASED [None]
  - DYSPNOEA [None]
  - EJECTION FRACTION DECREASED [None]
  - PULMONARY CONGESTION [None]
